FAERS Safety Report 6137307-6 (Version None)
Quarter: 2009Q1

REPORT INFORMATION
  Report Type: 
  Country: None (occurrence: None)
  Receive Date: 20090330
  Receipt Date: 20090324
  Transmission Date: 20090719
  Serious: Yes (Death, Life-Threatening, Hospitalization, Other)
  Sender: FDA-Public Use
  Company Number: HR-ROXANE LABORATORIES, INC.-2009-RO-00280RO

PATIENT
  Age: 73 Year
  Sex: Female

DRUGS (14)
  1. FUROSEMIDE [Suspect]
     Indication: RENAL FAILURE CHRONIC
  2. FUROSEMIDE [Suspect]
     Indication: HYPERTENSION
  3. CALCIUM CARBONATE [Suspect]
     Indication: RENAL FAILURE CHRONIC
  4. CALCIUM CARBONATE [Suspect]
     Indication: HYPERTENSION
  5. CEFUROXIME AXETIL [Suspect]
     Indication: ESCHERICHIA INFECTION
     Dosage: 1000MG
     Route: 048
  6. LISINOPRIL [Suspect]
     Indication: HYPERTENSION
  7. LISINOPRIL [Suspect]
     Indication: RENAL FAILURE CHRONIC
  8. LORATADINE [Suspect]
     Indication: ANTIALLERGIC THERAPY
  9. METHYLPREDNISOLONE 4MG TAB [Suspect]
     Indication: STEROID THERAPY
     Dosage: 125MG
     Route: 042
  10. CIPROFLOXACIN [Suspect]
     Indication: ANTIBIOTIC THERAPY
     Dosage: 400MG
     Route: 042
  11. CRYSTALLOID/COLLOID [Suspect]
     Indication: FLUID REPLACEMENT
  12. CORTICOSTEROID [Suspect]
     Indication: TOXIC EPIDERMAL NECROLYSIS
  13. FISH OIL [Suspect]
     Indication: TOXIC EPIDERMAL NECROLYSIS
  14. GENTAMICIN [Suspect]
     Indication: ANTIBIOTIC THERAPY
     Route: 061

REACTIONS (9)
  - DRUG INEFFECTIVE [None]
  - DRUG INTERACTION [None]
  - ESCHERICHIA INFECTION [None]
  - GRANULOCYTOPENIA [None]
  - LEUKOPENIA [None]
  - MULTI-ORGAN FAILURE [None]
  - OESOPHAGITIS HAEMORRHAGIC [None]
  - STAPHYLOCOCCAL SEPSIS [None]
  - TOXIC EPIDERMAL NECROLYSIS [None]
